FAERS Safety Report 4467647-8 (Version None)
Quarter: 2004Q4

REPORT INFORMATION
  Report Type: 
  Country: None (occurrence: None)
  Receive Date: 20041001
  Receipt Date: 20040915
  Transmission Date: 20050328
  Serious: Yes (Death)
  Sender: FDA-Public Use
  Company Number: 2004IC000395

PATIENT
  Age: 60 Year
  Sex: Male

DRUGS (7)
  1. FLUOROURACIL [Suspect]
     Indication: OESOPHAGEAL CARCINOMA
     Dosage: 350 MG; INTRAVNEOUS
     Route: 042
     Dates: start: 20010315, end: 20010423
  2. CISPLATIN [Suspect]
     Indication: OESOPHAGEAL CARCINOMA
     Dosage: 8 MG; INTRAVENOUS
     Route: 042
     Dates: start: 20010315, end: 20010423
  3. METHYCOBAL (MECOBALAMN) [Suspect]
     Indication: EPILEPSY
     Dosage: 1500 UG; ORAL
     Route: 048
     Dates: start: 20000922, end: 20010424
  4. RIVOTRIL [Concomitant]
  5. TEGRETOL [Concomitant]
  6. AMOBAN [Concomitant]
  7. PHENOBAL [Concomitant]

REACTIONS (11)
  - CONDITION AGGRAVATED [None]
  - CONVULSION [None]
  - DIALYSIS [None]
  - HEPATIC FAILURE [None]
  - HEPATIC FUNCTION ABNORMAL [None]
  - HEPATITIS FULMINANT [None]
  - MULTI-ORGAN FAILURE [None]
  - ODYNOPHAGIA [None]
  - OESOPHAGITIS [None]
  - PANCREATITIS ACUTE [None]
  - RENAL FAILURE [None]
